FAERS Safety Report 7379218-4 (Version None)
Quarter: 2011Q1

REPORT INFORMATION
  Report Type: 
  Country: None (occurrence: None)
  Receive Date: 20110328
  Receipt Date: 20110311
  Transmission Date: 20110831
  Serious: Yes (Hospitalization, Other)
  Sender: FDA-Public Use
  Company Number: US-AMGEN-USASP2011010699

PATIENT
  Age: 54 Year
  Sex: Male

DRUGS (11)
  1. GLIPIZIDE [Concomitant]
     Dosage: UNK
  2. PREDNISONE [Concomitant]
  3. CYCLOPHOSPHAMIDE [Concomitant]
  4. LOPRESSOR [Concomitant]
     Dosage: 1 MG, UNK
  5. ALLOPURINOL [Concomitant]
     Dosage: UNK
  6. NORVASC [Concomitant]
     Dosage: UNK
  7. SUSTIVA [Concomitant]
     Dosage: UNK
  8. ARANESP [Suspect]
     Indication: ANAEMIA OF MALIGNANT DISEASE
     Dosage: 200 A?G, Q2WK
     Dates: start: 20101122
  9. DOXORUBICIN [Concomitant]
  10. ARANESP [Suspect]
     Dosage: 300 A?G, Q2WK
  11. VINCRISTINE [Concomitant]

REACTIONS (2)
  - BLOOD PRESSURE ABNORMAL [None]
  - HAEMOGLOBIN DECREASED [None]
